FAERS Safety Report 8219288-4 (Version None)
Quarter: 2012Q1

REPORT INFORMATION
  Report Type: 
  Country: None (occurrence: None)
  Receive Date: 20120319
  Receipt Date: 20120309
  Transmission Date: 20120608
  Serious: Yes (Hospitalization)
  Sender: FDA-Public Use
  Company Number: CA-JNJFOC-20120201867

PATIENT
  Sex: Male
  Weight: 73.5 kg

DRUGS (1)
  1. REMICADE [Suspect]
     Indication: CROHN'S DISEASE
     Dosage: PATIENT HAD 66 INFUSIONS
     Route: 042

REACTIONS (1)
  - SPINAL FUSION SURGERY [None]
